FAERS Safety Report 18223160 (Version 1)
Quarter: 2020Q3

REPORT INFORMATION
  Report Type: Spontaneous
  Country: US (occurrence: US)
  Receive Date: 20200902
  Receipt Date: 20200902
  Transmission Date: 20201103
  Serious: No
  Sender: FDA-Public Use
  Company Number: None

PATIENT
  Sex: Female

DRUGS (1)
  1. LILETTA [Suspect]
     Active Substance: LEVONORGESTREL

REACTIONS (8)
  - Abdominal pain [None]
  - Nausea [None]
  - Weight increased [None]
  - Bacterial vaginosis [None]
  - Abdominal distension [None]
  - Night sweats [None]
  - Fungal infection [None]
  - Migraine [None]

NARRATIVE: CASE EVENT DATE: 20200508
